FAERS Safety Report 5586112-8 (Version None)
Quarter: 2007Q4

REPORT INFORMATION
  Report Type: 
  Country: None (occurrence: None)
  Receive Date: 20071205
  Receipt Date: 20061120
  Transmission Date: 20080405
  Serious: Yes (Death, Other)
  Sender: FDA-Public Use
  Company Number: HQWYE571627JUL05

PATIENT
  Age: 72 Year
  Sex: Male

DRUGS (8)
  1. EFFEXOR XR [Suspect]
     Indication: DRUG USE FOR UNKNOWN INDICATION
  2. AMBIEN [Suspect]
     Indication: DRUG USE FOR UNKNOWN INDICATION
     Dosage: UNK
  3. LAMICATAL (LAMOTRIGINE) [Concomitant]
  4. WELLBUTRIN [Concomitant]
  5. SEROQUEL [Concomitant]
  6. SYNTHROID [Concomitant]
  7. LIPITOR [Concomitant]
  8. AGGRENOX [Concomitant]

REACTIONS (1)
  - COMPLETED SUICIDE [None]
